FAERS Safety Report 19588043 (Version 1)
Quarter: 2021Q3

REPORT INFORMATION
  Report Type: Spontaneous
  Country: US (occurrence: US)
  Receive Date: 20210720
  Receipt Date: 20210720
  Transmission Date: 20211014
  Serious: No
  Sender: FDA-Public Use
  Company Number: None

PATIENT
  Sex: Female

DRUGS (3)
  1. HUMIRA [Suspect]
     Active Substance: ADALIMUMAB
     Indication: PSORIATIC ARTHROPATHY
     Route: 058
     Dates: start: 20210504
  2. VITAMIN D [Concomitant]
     Active Substance: VITAMIN D NOS
  3. CITALOPRAM [Concomitant]
     Active Substance: CITALOPRAM HYDROBROMIDE

REACTIONS (6)
  - Drug ineffective [None]
  - Fatigue [None]
  - Therapy interrupted [None]
  - Gastrointestinal disorder [None]
  - Product supply issue [None]
  - Hypersensitivity [None]
